FAERS Safety Report 9853017 (Version 2)
Quarter: 2014Q1

REPORT INFORMATION
  Report Type: Spontaneous
  Country: US (occurrence: US)
  Receive Date: 20140129
  Receipt Date: 20140214
  Transmission Date: 20141002
  Serious: Yes (Hospitalization)
  Sender: FDA-Public Use
  Company Number: US-JNJFOC-20140113036

PATIENT
  Age: 43 Year
  Sex: Male

DRUGS (2)
  1. REMICADE [Suspect]
     Indication: POLYCHONDRITIS
     Route: 042
  2. REMICADE [Suspect]
     Indication: POLYCHONDRITIS
     Route: 042

REACTIONS (4)
  - Iridocyclitis [Unknown]
  - Pneumonia [Unknown]
  - Off label use [Unknown]
  - Polychondritis [Not Recovered/Not Resolved]
